FAERS Safety Report 5851903-2 (Version None)
Quarter: 2008Q3

REPORT INFORMATION
  Report Type: 
  Country: None (occurrence: None)
  Receive Date: 20080819
  Receipt Date: 20080804
  Transmission Date: 20090109
  Serious: No
  Sender: FDA-Public Use
  Company Number: GR-2008-0366

PATIENT
  Age: 56 Year
  Sex: Male

DRUGS (2)
  1. NAVELBINE [Suspect]
     Indication: PLEURAL MESOTHELIOMA MALIGNANT
     Dosage: 30 MG/M2, CYCLICAL INTRAVENOUS
     Route: 042
  2. CISPLATIN [Suspect]
     Indication: PLEURAL MESOTHELIOMA MALIGNANT
     Dosage: 80 MG/M2, CYCLICAL INTRAVENOUS
     Route: 042

REACTIONS (5)
  - ASCITES [None]
  - NEPHROPATHY TOXIC [None]
  - PERFORMANCE STATUS DECREASED [None]
  - PLEURAL EFFUSION [None]
  - RENAL FAILURE ACUTE [None]
